FAERS Safety Report 6385634-X (Version None)
Quarter: 2009Q4

REPORT INFORMATION
  Report Type: 
  Country: None (occurrence: None)
  Receive Date: 20091002
  Receipt Date: 20081010
  Transmission Date: 20100525
  Serious: No
  Sender: FDA-Public Use
  Company Number: US-ASTRAZENECA-2008UW22349

PATIENT
  Age: 69 Year
  Sex: Female
  Weight: 63.5 kg

DRUGS (3)
  1. ARIMIDEX [Suspect]
     Indication: BREAST CANCER
     Route: 048
     Dates: start: 20070901
  2. ATENOLOL [Concomitant]
  3. MAXZIDE [Concomitant]

REACTIONS (2)
  - FATIGUE [None]
  - HAIR DISORDER [None]
